FAERS Safety Report 19774928 (Version 1)
Quarter: 2021Q3

REPORT INFORMATION
  Report Type: Spontaneous
  Country: US (occurrence: US)
  Receive Date: 20210901
  Receipt Date: 20210901
  Transmission Date: 20211014
  Serious: No
  Sender: FDA-Public Use
  Company Number: US-GALDERMA-US2021014794

PATIENT

DRUGS (6)
  1. DIFFERIN DAILY DEEP CLEANSER WITH BPO [Suspect]
     Active Substance: BENZOYL PEROXIDE
     Indication: ACNE CYSTIC
     Dosage: 1 DOSAGE FORM, QD (AT NIGHT)
     Route: 061
     Dates: start: 202103
  2. DIFFERIN OIL CONTROL MOISTURIZER SPF 30 [Suspect]
     Active Substance: AVOBENZONE\OCTISALATE\OCTOCRYLENE
     Indication: ACNE CYSTIC
     Dosage: 1 DOSAGE FORM, QD (IN THE MORNING)
     Route: 061
     Dates: start: 202103
  3. DIFFERIN DARK SPOT CORRECTING SERUM [Suspect]
     Active Substance: HYDROQUINONE
     Indication: ACNE CYSTIC
     Dosage: 1 DOSAGE FORM, QD (IN THE MORNING)
     Route: 061
     Dates: start: 202103
  4. DIFFERIN PORE?MINIMIZING TONER [Suspect]
     Active Substance: COSMETICS
     Indication: ACNE CYSTIC
     Dosage: 1 DOSAGE FORM, QD (IN THE MORNING)
     Route: 061
     Dates: start: 202103
  5. DIFFERIN DETOX SOOTHE MASK (COSMETICS) [Suspect]
     Active Substance: COSMETICS
     Indication: ACNE CYSTIC
     Dosage: 1 DOSAGE FORM, QD (NIGHT)
     Route: 061
     Dates: start: 202103
  6. DIFFERIN GEL [Suspect]
     Active Substance: ADAPALENE
     Indication: ACNE CYSTIC
     Dosage: 1 DOSAGE FORM, QD
     Route: 061
     Dates: start: 202103

REACTIONS (4)
  - Skin irritation [Unknown]
  - Product use in unapproved indication [Recovered/Resolved]
  - Acne [Not Recovered/Not Resolved]
  - Drug effective for unapproved indication [Recovered/Resolved]

NARRATIVE: CASE EVENT DATE: 2021
